FAERS Safety Report 9243533 (Version 1)
Quarter: 2013Q1

REPORT INFORMATION
  Report Type: Spontaneous
  Country: US (occurrence: None)
  Receive Date: 20121123
  Receipt Date: 20121123
  Transmission Date: 20140127
  Serious: Yes (Other)
  Sender: FDA-Public Use
  Company Number: 358560

PATIENT
  Age: 40 Year
  Sex: Male
  Weight: 144.2 kg

DRUGS (6)
  1. VICTOZA (LIRAGLUTIDE) SOLUTION FOR INJECTION, 6MG/ML [Suspect]
     Indication: TYPE 2 DIABETES MELLITUS
     Route: 058
     Dates: start: 20120627
  2. METFORMIN (METFORMIN) [Concomitant]
  3. IBUPROFEN (IBUPROFEN) [Concomitant]
  4. ZOCOR (SIMVASTATIN) [Concomitant]
  5. HYDROCHLOROTHIAZIDE W/LISINOPRIL (HYDROCHLOROTHIAZIDE, LISINOPRIL) [Concomitant]
  6. AMARYL (GLIMEPIRIDE) [Concomitant]

REACTIONS (1)
  - Pancreatitis acute [None]
